FAERS Safety Report 10367371 (Version 1)
Quarter: 2014Q3

REPORT INFORMATION
  Report Type: Spontaneous
  Country: CA (occurrence: None)
  Receive Date: 20140805
  Receipt Date: 20140805
  Transmission Date: 20150326
  Serious: Yes (Death)
  Sender: FDA-Public Use
  Company Number: 2468971

PATIENT
  Age: 11 Year
  Sex: Male

DRUGS (1)
  1. CALCIUM FOLINATE [Suspect]
     Active Substance: LEUCOVORIN CALCIUM
     Indication: OVERDOSE
     Route: 037

REACTIONS (13)
  - Anaemia [None]
  - Incorrect dose administered [None]
  - Febrile neutropenia [None]
  - Weight decreased [None]
  - Epilepsy [None]
  - Disorientation [None]
  - Convulsion [None]
  - Confusional state [None]
  - Fatigue [None]
  - Brain death [None]
  - Pruritus [None]
  - Neurotoxicity [None]
  - Medication error [None]
